FAERS Safety Report 16409166 (Version 1)
Quarter: 2019Q2

REPORT INFORMATION
  Report Type: Spontaneous
  Country: SA (occurrence: SA)
  Receive Date: 20190610
  Receipt Date: 20190610
  Transmission Date: 20190711
  Serious: Yes (Hospitalization, Other)
  Sender: FDA-Public Use
  Company Number: SA-LEADING PHARMA, LLC-2067977

PATIENT
  Age: 55 Year
  Sex: Male
  Weight: 134 kg

DRUGS (1)
  1. FUROSEMIDE. [Suspect]
     Active Substance: FUROSEMIDE
     Indication: PRODUCT USED FOR UNKNOWN INDICATION
     Route: 048

REACTIONS (2)
  - Hyperglycaemic hyperosmolar nonketotic syndrome [Recovered/Resolved]
  - Pericardial effusion [Recovered/Resolved]
